FAERS Safety Report 15808445 (Version 1)
Quarter: 2019Q1

REPORT INFORMATION
  Report Type: Spontaneous
  Country: US (occurrence: US)
  Receive Date: 20190110
  Receipt Date: 20190110
  Transmission Date: 20190417
  Serious: Yes (Other)
  Sender: FDA-Public Use
  Company Number: US-PFIZER INC-2019003491

PATIENT

DRUGS (1)
  1. PREPARATION H SUPPOSITORY [Suspect]
     Active Substance: COCOA BUTTER\PHENYLEPHRINE HYDROCHLORIDE
     Indication: PAIN
     Dosage: ^MORE THEN 4X/DAY^

REACTIONS (10)
  - Foreign body [Unknown]
  - Musculoskeletal stiffness [Unknown]
  - Feeling abnormal [Unknown]
  - Pain [Unknown]
  - Urethral haemorrhage [Unknown]
  - Bladder irritation [Unknown]
  - Muscle spasms [Unknown]
  - Hyperhidrosis [Unknown]
  - Constipation [Unknown]
  - Intentional product use issue [Unknown]
